FAERS Safety Report 4821184-7 (Version None)
Quarter: 2005Q4

REPORT INFORMATION
  Report Type: 
  Country: None (occurrence: None)
  Receive Date: 20051103
  Receipt Date: 20051018
  Transmission Date: 20060501
  Serious: Yes (Other)
  Sender: FDA-Public Use
  Company Number: USA0509107571

PATIENT
  Age: 59 Year
  Sex: Female
  Weight: 55 kg

DRUGS (3)
  1. FORTEO [Suspect]
     Indication: OSTEOPOROSIS
     Dosage: 20 UG DAY
     Dates: start: 20040801
  2. METOPROLOL SUCCINATE [Concomitant]
  3. CALCIUM CARBONATE [Concomitant]

REACTIONS (8)
  - BALANCE DISORDER [None]
  - BLOOD CALCIUM INCREASED [None]
  - CARDIAC MURMUR [None]
  - ELECTROCARDIOGRAM ABNORMAL [None]
  - PERICARDIAL EFFUSION [None]
  - SINUS ARRHYTHMIA [None]
  - TINNITUS [None]
  - VITAMIN D DECREASED [None]
